FAERS Safety Report 6927946-4 (Version None)
Quarter: 2010Q3

REPORT INFORMATION
  Report Type: 
  Country: None (occurrence: None)
  Receive Date: 20100817
  Receipt Date: 20100806
  Transmission Date: 20110219
  Serious: Yes (Hospitalization)
  Sender: FDA-Public Use
  Company Number: ZA-ELI_LILLY_AND_COMPANY-ZA201006006859

PATIENT
  Age: 47 Year
  Sex: Male

DRUGS (2)
  1. HUMALOG MIX 75/25 [Suspect]
     Dosage: UNK, UNKNOWN
     Route: 065
     Dates: start: 20100616, end: 20100623
  2. GLYCOMIN [Concomitant]
     Dosage: 2 D/F, 2/D
     Route: 048

REACTIONS (2)
  - DYSPNOEA [None]
  - TUBERCULOSIS [None]
